FAERS Safety Report 16811181 (Version 1)
Quarter: 2019Q3

REPORT INFORMATION
  Report Type: Spontaneous
  Country: GB (occurrence: GB)
  Receive Date: 20190916
  Receipt Date: 20190916
  Transmission Date: 20191005
  Serious: Yes (Other)
  Sender: FDA-Public Use
  Company Number: GB-JNJFOC-20190902198

PATIENT
  Age: 60 Year
  Sex: Female
  Weight: 70 kg

DRUGS (1)
  1. INVEGA TRINZA [Suspect]
     Active Substance: PALIPERIDONE PALMITATE
     Indication: PRODUCT USED FOR UNKNOWN INDICATION
     Dosage: 175MG/0.875ML,?PROLONGED-RELEASE SUSPENSION FOR INJECTION PRE-FILLED SYRINGE
     Route: 030
     Dates: start: 20190815

REACTIONS (2)
  - Chest pain [Recovered/Resolved]
  - Breast pain [Unknown]

NARRATIVE: CASE EVENT DATE: 20190815
